FAERS Safety Report 25964473 (Version 1)
Quarter: 2025Q4

REPORT INFORMATION
  Report Type: Spontaneous
  Country: EU (occurrence: EU)
  Receive Date: 20251027
  Receipt Date: 20251027
  Transmission Date: 20260119
  Serious: Yes (Other)
  Sender: BIOVITRUM
  Company Number: EU-BIOVITRUM-2025-FR-009363

PATIENT
  Age: 69 Year
  Sex: Female
  Weight: 72 kg

DRUGS (1)
  1. KINERET [Suspect]
     Active Substance: ANAKINRA
     Indication: Product used for unknown indication
     Dosage: 100 MG/DAY

REACTIONS (16)
  - Injection site pain [Recovered/Resolved]
  - Middle insomnia [Recovered/Resolved]
  - Asthenia [Recovered/Resolved]
  - Headache [Recovered/Resolved]
  - Cushingoid [Recovered/Resolved]
  - Hypertension [Recovered/Resolved]
  - Stress [Recovered/Resolved]
  - Vision blurred [Recovered/Resolved]
  - Gait disturbance [Recovered/Resolved]
  - Peripheral swelling [Recovered/Resolved]
  - C-reactive protein increased [Recovered/Resolved]
  - Blood fibrinogen increased [Recovered/Resolved]
  - Giant cell arteritis [Recovered/Resolved]
  - Urinary tract infection [Recovered/Resolved]
  - Polymyalgia rheumatica [Unknown]
  - Blood iron decreased [Unknown]

NARRATIVE: CASE EVENT DATE: 20180801
